FAERS Safety Report 21596540 (Version 2)
Quarter: 2022Q4

REPORT INFORMATION
  Report Type: Spontaneous
  Country: US (occurrence: US)
  Receive Date: 20221115
  Receipt Date: 20221128
  Transmission Date: 20230112
  Serious: No
  Sender: FDA-Public Use
  Company Number: US-LUPIN PHARMACEUTICALS INC.-2022-13396

PATIENT

DRUGS (1)
  1. LISINOPRIL [Suspect]
     Active Substance: LISINOPRIL
     Indication: Blood pressure abnormal
     Dosage: 1 DOSAGE FORM (TABLET), QD
     Route: 065

REACTIONS (4)
  - Recalled product administered [Unknown]
  - Hypersensitivity [Unknown]
  - Lip swelling [Unknown]
  - Mouth swelling [Unknown]
